FAERS Safety Report 11778777 (Version 2)
Quarter: 2020Q3

REPORT INFORMATION
  Report Type: Report from Study
  Country: CA (occurrence: CA)
  Receive Date: 20151125
  Receipt Date: 20200723
  Transmission Date: 20201102
  Serious: Yes (Other)
  Sender: FDA-Public Use
  Company Number: CA-MYLANLABS-2015M1041865

PATIENT

DRUGS (4)
  1. DEXAMETHASONE. [Suspect]
     Active Substance: DEXAMETHASONE
     Indication: AMYLOIDOSIS
     Dosage: 20?40MG ONCE WEEKLY
     Route: 048
  2. BORTEZOMIB. [Suspect]
     Active Substance: BORTEZOMIB
     Indication: AMYLOIDOSIS
     Dosage: 1.3 MILLIGRAM/SQ. METER, QD ADMINISTERED WEEKLY FOR 3?4 WEEKS..
     Route: 065
  3. CYCLOPHOSPHAMIDE. [Suspect]
     Active Substance: CYCLOPHOSPHAMIDE
     Indication: AMYLOIDOSIS
     Dosage: 300 MILLIGRAM/SQ. METER, QW, FOR 3?4 WEEKS IN CYCLES OF 28 DAYS, AS PART OF THE CYBORD REGIMEN
     Route: 048
  4. DEXAMETHASONE. [Suspect]
     Active Substance: DEXAMETHASONE
     Dosage: UNK, QW  ADMINISTERED ONCE WEEKLY FOR 3?4 WEEKS IN CYCLES OF 28 DAYS, AS PART OF THE CYBORD REGIMEN
     Route: 048

REACTIONS (1)
  - Autonomic neuropathy [Unknown]
